FAERS Safety Report 8396266-6 (Version None)
Quarter: 2012Q2

REPORT INFORMATION
  Report Type: 
  Country: None (occurrence: None)
  Receive Date: 20120530
  Receipt Date: 20120518
  Transmission Date: 20120825
  Serious: Yes (Hospitalization)
  Sender: FDA-Public Use
  Company Number: CA-ROCHE-GNE319969

PATIENT
  Sex: Female

DRUGS (1)
  1. OMALIZUMAB [Suspect]
     Indication: ASTHMA
     Dosage: 300 MG, 1/MONTH
     Route: 058
     Dates: start: 20061011

REACTIONS (10)
  - EATING DISORDER [None]
  - ARTHRITIS [None]
  - WHEEZING [None]
  - GASTROOESOPHAGEAL REFLUX DISEASE [None]
  - ASTHENIA [None]
  - GASTROENTERITIS VIRAL [None]
  - SOCIAL PROBLEM [None]
  - COUGH [None]
  - DIVERTICULITIS [None]
  - ABDOMINAL DISCOMFORT [None]
